FAERS Safety Report 6004257-5 (Version None)
Quarter: 2008Q4

REPORT INFORMATION
  Report Type: 
  Country: None (occurrence: None)
  Receive Date: 20081216
  Receipt Date: 20081204
  Transmission Date: 20090506
  Serious: Yes (Disabling, Other)
  Sender: FDA-Public Use
  Company Number: CY-PFIZER INC-2008152340

PATIENT

DRUGS (2)
  1. SUNITINIB MALATE [Suspect]
     Indication: RENAL CANCER RECURRENT
     Dosage: 50 MG, UNK
  2. WARFARIN [Suspect]
     Indication: VENA CAVA THROMBOSIS

REACTIONS (6)
  - BLISTER [None]
  - DRUG TOXICITY [None]
  - GAIT DISTURBANCE [None]
  - PAIN [None]
  - PALMAR-PLANTAR ERYTHRODYSAESTHESIA SYNDROME [None]
  - RASH [None]
